FAERS Safety Report 5588876-6 (Version None)
Quarter: 2008Q1

REPORT INFORMATION
  Report Type: 
  Country: None (occurrence: None)
  Receive Date: 20080111
  Receipt Date: 20080102
  Transmission Date: 20080703
  Serious: Yes (Other)
  Sender: FDA-Public Use
  Company Number: US-RANBAXY-2008US-12404

PATIENT

DRUGS (1)
  1. OPIUM TINCTURE [Suspect]
     Indication: DIARRHOEA
     Dosage: .06 ML, Q4H

REACTIONS (2)
  - DRUG INEFFECTIVE [None]
  - VISUAL DISTURBANCE [None]
